FAERS Safety Report 15209386 (Version 1)
Quarter: 2018Q3

REPORT INFORMATION
  Report Type: Spontaneous
  Country: US (occurrence: US)
  Receive Date: 20180727
  Receipt Date: 20180727
  Transmission Date: 20181010
  Serious: No
  Sender: FDA-Public Use
  Company Number: US-SA-2018SA132893

PATIENT
  Age: 66 Year
  Sex: Female

DRUGS (2)
  1. HUMALOG [Concomitant]
     Active Substance: INSULIN LISPRO
     Dosage: UNK UNK,UNK
     Route: 065
  2. LANTUS [Suspect]
     Active Substance: INSULIN GLARGINE
     Dosage: UNK UNK,UNK
     Route: 051

REACTIONS (6)
  - Pollakiuria [Unknown]
  - Increased appetite [Unknown]
  - Thirst [Unknown]
  - Drug ineffective [Unknown]
  - Blood glucose abnormal [Unknown]
  - Glycosylated haemoglobin increased [Unknown]
